FAERS Safety Report 5262623-X (Version None)
Quarter: 2007Q1

REPORT INFORMATION
  Report Type: 
  Country: None (occurrence: None)
  Receive Date: 20070312
  Receipt Date: 20070301
  Transmission Date: 20070707
  Serious: Yes (Hospitalization)
  Sender: FDA-Public Use
  Company Number: AU-AMGEN-US205207

PATIENT
  Sex: Male

DRUGS (8)
  1. PANITUMUMAB [Suspect]
     Indication: COLORECTAL CANCER
     Route: 042
     Dates: start: 20061106
  2. AMG 706 [Suspect]
     Indication: METASTATIC NEOPLASM
     Route: 048
     Dates: start: 20061108
  3. IRINOTECAN HCL [Suspect]
     Route: 042
  4. FLUOROURACIL [Concomitant]
     Route: 042
  5. LEUCOVORIN CALCIUM [Concomitant]
     Route: 042
  6. LEVOTHYROXINE SODIUM [Concomitant]
     Route: 065
  7. IMODIUM [Concomitant]
     Route: 065
  8. NOTEN [Concomitant]
     Route: 065

REACTIONS (2)
  - DEHYDRATION [None]
  - DIARRHOEA [None]
